FAERS Safety Report 5728377-5 (Version None)
Quarter: 2008Q2

REPORT INFORMATION
  Report Type: 
  Country: None (occurrence: None)
  Receive Date: 20080502
  Receipt Date: 20080502
  Transmission Date: 20081010
  Serious: No
  Sender: FDA-Public Use
  Company Number: None

PATIENT
  Sex: Female
  Weight: 63.05 kg

DRUGS (1)
  1. ZYRTEC [Suspect]
     Indication: MULTIPLE ALLERGIES
     Dosage: 10 MG ONCE DAILY PO
     Route: 048
     Dates: start: 20070801, end: 20080424

REACTIONS (2)
  - PRURITUS GENERALISED [None]
  - WITHDRAWAL SYNDROME [None]
